FAERS Safety Report 25839904 (Version 1)
Quarter: 2025Q3

REPORT INFORMATION
  Report Type: Report from Study
  Country: IN (occurrence: IN)
  Receive Date: 20250924
  Receipt Date: 20250924
  Transmission Date: 20251020
  Serious: Yes (Hospitalization)
  Sender: ASTELLAS
  Company Number: IN-ASTELLAS-2025-AER-052270

PATIENT
  Age: 82 Year
  Sex: Male

DRUGS (1)
  1. ENFORTUMAB VEDOTIN-EJFV [Suspect]
     Active Substance: ENFORTUMAB VEDOTIN-EJFV
     Indication: Transitional cell carcinoma
     Dosage: 20 X 4 COUNTS
     Route: 042
     Dates: start: 20250524, end: 20250906

REACTIONS (2)
  - Lower respiratory tract infection [Recovering/Resolving]
  - Haemoglobin decreased [Recovering/Resolving]
